FAERS Safety Report 7118924-3 (Version None)
Quarter: 2010Q4

REPORT INFORMATION
  Report Type: 
  Country: None (occurrence: None)
  Receive Date: 20101123
  Receipt Date: 20101116
  Transmission Date: 20110411
  Serious: Yes (Other)
  Sender: FDA-Public Use
  Company Number: FR-ROCHE-739098

PATIENT
  Sex: Female
  Weight: 48 kg

DRUGS (9)
  1. BONIVA [Suspect]
     Indication: OSTEOPOROSIS
     Route: 042
     Dates: start: 20101021
  2. MODOPAR [Concomitant]
     Indication: PARKINSON'S DISEASE
     Dosage: DRUG REPORTED AS MODOPAR 25, TABLET
     Route: 048
  3. AZILECT [Concomitant]
     Indication: PARKINSON'S DISEASE
     Route: 048
  4. METFORMIN HCL [Concomitant]
     Dosage: DRUG: METFORMINE 500
     Route: 048
  5. CORVASAL [Concomitant]
     Route: 048
  6. CORDARONE [Concomitant]
     Indication: HYPERTENSION
     Dosage: ADDITIONAL INDICATION: CARDIAC INSUFFICIENCY
     Route: 048
  7. GLIMEPIRIDE [Concomitant]
     Dosage: DRUG REPORTED AS GLIMEPIRIDE1
     Route: 048
  8. CRESTOR [Concomitant]
     Dosage: DRUG REPORTED AS CRESTOR 5
     Route: 048
  9. ZOLOFT [Concomitant]

REACTIONS (1)
  - EPILEPSY [None]
